FAERS Safety Report 17237566 (Version 1)
Quarter: 2020Q1

REPORT INFORMATION
  Report Type: Report from Study
  Country: RU (occurrence: RU)
  Receive Date: 20200106
  Receipt Date: 20200106
  Transmission Date: 20200409
  Serious: Yes (Other)
  Sender: FDA-Public Use
  Company Number: RU-ASTRAZENECA-2019SF88425

PATIENT
  Age: 72 Year
  Sex: Male
  Weight: 85 kg

DRUGS (1)
  1. FORXIGA [Suspect]
     Active Substance: DAPAGLIFLOZIN
     Indication: TYPE 2 DIABETES MELLITUS
     Route: 048
     Dates: start: 20190628

REACTIONS (3)
  - Ulna fracture [Not Recovered/Not Resolved]
  - Joint injury [Not Recovered/Not Resolved]
  - Fall [Not Recovered/Not Resolved]
